FAERS Safety Report 7229973-9 (Version None)
Quarter: 2011Q1

REPORT INFORMATION
  Report Type: 
  Country: None (occurrence: None)
  Receive Date: 20110117
  Receipt Date: 20110113
  Transmission Date: 20110831
  Serious: Yes (Other)
  Sender: FDA-Public Use
  Company Number: GR-ABBOTT-10P-066-0687786-00

PATIENT
  Age: 53 Year
  Sex: Female

DRUGS (9)
  1. HUMIRA [Suspect]
     Indication: RHEUMATOID ARTHRITIS
     Route: 058
     Dates: start: 20091008, end: 20100501
  2. IDEOS [Concomitant]
     Indication: OSTEOPOROSIS
  3. BARAKLUD [Concomitant]
     Indication: PROPHYLAXIS
  4. CORTISONE [Concomitant]
     Indication: RHEUMATOID ARTHRITIS
     Dates: start: 20080501
  5. FOSAMAX [Concomitant]
     Indication: OSTEOPOROSIS
  6. METHOTREXATE [Concomitant]
     Indication: RHEUMATOID ARTHRITIS
     Dates: start: 20080501
  7. BARAKLUD [Concomitant]
     Indication: HEPATITIS B
     Dates: start: 20091001
  8. DIAMICRON [Concomitant]
     Indication: DIABETES MELLITUS
  9. ATACAND [Concomitant]
     Indication: HYPERTENSION

REACTIONS (1)
  - DERMATITIS PSORIASIFORM [None]
